FAERS Safety Report 17442860 (Version 1)
Quarter: 2020Q1

REPORT INFORMATION
  Report Type: Spontaneous
  Country: US (occurrence: US)
  Receive Date: 20200221
  Receipt Date: 20200221
  Transmission Date: 20200409
  Serious: Yes (Hospitalization, Other)
  Sender: FDA-Public Use
  Company Number: US-CELLTRION INC.-2019US027623

PATIENT

DRUGS (22)
  1. NORVASC [Concomitant]
     Active Substance: AMLODIPINE BESYLATE
     Dosage: 5 MG, DAILY
     Route: 048
  2. SYNTHROID [Concomitant]
     Active Substance: LEVOTHYROXINE SODIUM
     Dosage: 0.175 MG PO MOTUWETHFRSA
  3. EVISTA [Concomitant]
     Active Substance: RALOXIFENE HYDROCHLORIDE
     Dosage: 60 MG PO DAILY
     Route: 048
  4. CORTEF ACETATE [Concomitant]
     Active Substance: HYDROCORTISONE ACETATE
     Dosage: 20 MG PO QAM GIVE 2TABS=20MG PO DAILY
     Route: 048
  5. ZESTRIL [Concomitant]
     Active Substance: LISINOPRIL
     Dosage: 10 MG PO DAILY
     Route: 048
  6. DELTASONE [Concomitant]
     Active Substance: PREDNISONE
     Dosage: 30 MG PO DAILY GIVE ONE AND ONE-HALF TAB-30MG PO DAILY
     Route: 048
  7. FERROUS SULFATE. [Concomitant]
     Active Substance: FERROUS SULFATE
     Dosage: 325 MG, DAILY
     Route: 048
  8. CORTEF ACETATE [Concomitant]
     Active Substance: HYDROCORTISONE ACETATE
     Dosage: 10 MG PO 1600
     Route: 048
  9. PRINIVIL [Concomitant]
     Active Substance: LISINOPRIL
     Dosage: 10 MG PO DAILY
     Route: 048
  10. TRUXIMA [Suspect]
     Active Substance: RITUXIMAB-ABBS
     Dosage: 500 MG VIAL DAYS 1,8,15, AND 22 OF CYCLE
     Route: 042
     Dates: start: 20191203
  11. PRILOSEC [Concomitant]
     Active Substance: OMEPRAZOLE MAGNESIUM
     Dosage: 20 MG PO AT BEDTIME
     Route: 048
  12. AMBIEN [Concomitant]
     Active Substance: ZOLPIDEM TARTRATE
     Dosage: 10 MG
  13. FLORINEF ACETATE [Concomitant]
     Active Substance: FLUDROCORTISONE ACETATE
     Dosage: 0.1 MG, BID DAILY AND AT 1600
     Route: 048
  14. FLUOXETINE HCL [Concomitant]
     Active Substance: FLUOXETINE HYDROCHLORIDE
     Dosage: 20 MG, DAILY AT 1600
     Route: 048
  15. SYNTHROID [Concomitant]
     Active Substance: LEVOTHYROXINE SODIUM
     Dosage: 0.5 TAB PO SU GIVE ONE HALF TAB=87.5MCG
     Route: 048
  16. KLOR-CON M20 [Concomitant]
     Active Substance: POTASSIUM CHLORIDE
     Dosage: 40 MEQ PO DAILY @0600, 1600 GIVE 2TABS=40MEQ PO DAILY AT 6AM AND 4PM
  17. GLUCOPHAGE [Concomitant]
     Active Substance: METFORMIN HYDROCHLORIDE
     Dosage: 1,0000 MG PO BID
     Route: 048
  18. KLONOPIN [Concomitant]
     Active Substance: CLONAZEPAM
     Dosage: 0.5 MG, BID
     Route: 048
  19. VITAMIN D2 [Concomitant]
     Active Substance: ERGOCALCIFEROL
     Dosage: 50,000 UNIT PO Q7D
     Route: 048
  20. TRUXIMA [Suspect]
     Active Substance: RITUXIMAB-ABBS
     Indication: OCULAR PEMPHIGOID
     Dosage: 100 ML VIAL DAYS 1,8,15, AND 22 OF CYCLE
     Route: 042
     Dates: start: 20191203
  21. HYDROCHLOROTHIAZIDE. [Concomitant]
     Active Substance: HYDROCHLOROTHIAZIDE
     Dosage: 25 MG, DAILY
     Route: 048
  22. SEROQUEL [Concomitant]
     Active Substance: QUETIAPINE FUMARATE
     Dosage: 400 MG PO AT BEDTIME
     Route: 048

REACTIONS (2)
  - Product use in unapproved indication [Unknown]
  - Anaphylactic reaction [Recovering/Resolving]

NARRATIVE: CASE EVENT DATE: 20191203
